FAERS Safety Report 7821191-6 (Version None)
Quarter: 2011Q4

REPORT INFORMATION
  Report Type: 
  Country: None (occurrence: None)
  Receive Date: 20111018
  Receipt Date: 20111014
  Transmission Date: 20120403
  Serious: No
  Sender: FDA-Public Use
  Company Number: US-B.I. PHARMACEUTICALS,INC./RIDGEFIELD-2011-BP-19033BP

PATIENT
  Sex: Female
  Weight: 51.71 kg

DRUGS (11)
  1. PRADAXA [Suspect]
     Indication: ATRIAL FIBRILLATION
     Dosage: 300 MG
     Route: 048
     Dates: start: 20101201
  2. AMIODARONE HCL [Suspect]
     Indication: ATRIAL FIBRILLATION
     Dosage: 200 MG
     Dates: start: 20110316
  3. SYNTHROID [Concomitant]
     Indication: HYPOTHYROIDISM
     Dosage: 112 MCG
     Route: 048
  4. BENADRYL [Concomitant]
  5. ZOPENEX [Concomitant]
  6. CALCIUM CARBONATE [Concomitant]
     Indication: SUPPLEMENTATION THERAPY
  7. ATIVAN [Concomitant]
  8. ZOPENEX [Concomitant]
  9. AMIODARONE HCL [Suspect]
     Dosage: 100 MG
     Dates: start: 20110627, end: 20110829
  10. VITAMIN TAB [Concomitant]
     Indication: SUPPLEMENTATION THERAPY
  11. AMLODIPINE [Concomitant]
     Dosage: 5 MG

REACTIONS (5)
  - CHILLS [None]
  - CONSTIPATION [None]
  - ABDOMINAL DISTENSION [None]
  - CHEST DISCOMFORT [None]
  - FLATULENCE [None]
